FAERS Safety Report 17393095 (Version 8)
Quarter: 2021Q2

REPORT INFORMATION
  Report Type: Report from Study
  Country: None (occurrence: CO)
  Receive Date: 20200207
  Receipt Date: 20210514
  Transmission Date: 20210716
  Serious: Yes (Hospitalization, Other)
  Sender: FDA-Public Use
  Company Number: CO-ABBVIE-20K-036-3256653-00

PATIENT
  Age: 49 Year
  Sex: Female
  Weight: 54 kg

DRUGS (3)
  1. ACETAMINOPHEN. [Concomitant]
     Active Substance: ACETAMINOPHEN
     Indication: PRODUCT USED FOR UNKNOWN INDICATION
  2. IMBRUVICA [Suspect]
     Active Substance: IBRUTINIB
     Indication: CHRONIC LYMPHOCYTIC LEUKAEMIA
     Route: 048
     Dates: start: 20191221
  3. IMBRUVICA [Suspect]
     Active Substance: IBRUTINIB
     Route: 048

REACTIONS (19)
  - Weight increased [Recovering/Resolving]
  - Diarrhoea [Recovering/Resolving]
  - Weight decreased [Recovering/Resolving]
  - Petechiae [Not Recovered/Not Resolved]
  - Acne [Recovered/Resolved]
  - Pyrexia [Not Recovered/Not Resolved]
  - Influenza [Recovering/Resolving]
  - Musculoskeletal pain [Recovering/Resolving]
  - Vaginal disorder [Recovering/Resolving]
  - Skin exfoliation [Recovering/Resolving]
  - Chills [Not Recovered/Not Resolved]
  - Nausea [Recovering/Resolving]
  - Trigeminal neuralgia [Recovering/Resolving]
  - Dizziness [Recovered/Resolved]
  - Productive cough [Recovering/Resolving]
  - White blood cell disorder [Recovering/Resolving]
  - Contusion [Recovering/Resolving]
  - Intertrigo [Recovering/Resolving]
  - Illness [Not Recovered/Not Resolved]

NARRATIVE: CASE EVENT DATE: 20191222
